FAERS Safety Report 15218206 (Version 1)
Quarter: 2018Q3

REPORT INFORMATION
  Report Type: Spontaneous
  Country: US (occurrence: US)
  Receive Date: 20180730
  Receipt Date: 20180730
  Transmission Date: 20181010
  Serious: Yes (Life-Threatening, Hospitalization, Other)
  Sender: FDA-Public Use
  Company Number: US-ALEMBIC PHARMACUETICALS LIMITED-2018SCAL000543

PATIENT

DRUGS (7)
  1. AMANTADINE HYDROCHLORIDE. [Suspect]
     Active Substance: AMANTADINE HYDROCHLORIDE
     Indication: DEPRESSION
     Dosage: 400 MILLIGRAM, QD
  2. TRAZODONE                          /00447702/ [Concomitant]
     Active Substance: TRAZODONE HYDROCHLORIDE
     Indication: DEPRESSION
     Dosage: UNK
  3. PROTRIPTYLINE [Concomitant]
     Active Substance: PROTRIPTYLINE
     Indication: DEPRESSION
     Dosage: UNK
  4. AMANTADINE HYDROCHLORIDE. [Suspect]
     Active Substance: AMANTADINE HYDROCHLORIDE
     Dosage: LOWER DOSE
  5. AMANTADINE HYDROCHLORIDE. [Suspect]
     Active Substance: AMANTADINE HYDROCHLORIDE
     Dosage: 1000 MILLIGRAM, QD
  6. DONEPEZIL HYDROCHLORIDE. [Concomitant]
     Active Substance: DONEPEZIL HYDROCHLORIDE
     Indication: DEPRESSION
     Dosage: UNK
  7. DULOXETINE. [Concomitant]
     Active Substance: DULOXETINE
     Indication: DEPRESSION
     Dosage: UNK

REACTIONS (8)
  - Toxicity to various agents [Unknown]
  - Off label use [Unknown]
  - Encephalopathy [Recovering/Resolving]
  - Drug level increased [Unknown]
  - Tremor [Recovering/Resolving]
  - Acute respiratory failure [Recovering/Resolving]
  - Asthenia [Recovering/Resolving]
  - Agitation [Recovering/Resolving]
